FAERS Safety Report 9230638 (Version 1)
Quarter: 2013Q2

REPORT INFORMATION
  Report Type: Spontaneous
  Country: GB (occurrence: GB)
  Receive Date: 20130415
  Receipt Date: 20130415
  Transmission Date: 20140414
  Serious: Yes (Hospitalization, Other)
  Sender: FDA-Public Use
  Company Number: GB-JNJFOC-20130405162

PATIENT
  Age: 75 Year
  Sex: Male
  Weight: 66 kg

DRUGS (14)
  1. XARELTO [Suspect]
     Indication: CEREBROVASCULAR ACCIDENT PROPHYLAXIS
     Route: 048
     Dates: start: 20120622, end: 20130313
  2. XARELTO [Suspect]
     Indication: ATRIAL FIBRILLATION
     Route: 048
     Dates: start: 20120622, end: 20130313
  3. LORATADINE [Concomitant]
     Route: 065
  4. PARACETAMOL [Concomitant]
     Route: 065
  5. DIGOXIN [Concomitant]
     Route: 065
  6. EZETIMIBE [Concomitant]
     Route: 065
  7. TAZOCIN [Concomitant]
     Indication: UROSEPSIS
     Route: 065
  8. QVAR [Concomitant]
     Route: 055
  9. RANITIDINE [Concomitant]
     Route: 065
  10. VENTOLIN [Concomitant]
     Route: 065
  11. CO AMOXICLAV [Concomitant]
     Route: 065
  12. BISOPROLOL FUMARATE [Concomitant]
     Route: 065
  13. ACETYLSALICYLIC ACID [Concomitant]
     Route: 065
     Dates: start: 20120325
  14. FERROUS SULPHATE [Concomitant]
     Route: 065

REACTIONS (7)
  - Gastrointestinal haemorrhage [Recovered/Resolved]
  - Haemoglobin decreased [Recovered/Resolved]
  - Duodenal ulcer [Recovered/Resolved]
  - Melaena [Recovered/Resolved]
  - Oesophagitis [Recovered/Resolved]
  - Gastritis [Recovered/Resolved]
  - Duodenitis [Recovered/Resolved]
